FAERS Safety Report 5835143-9 (Version None)
Quarter: 2008Q3

REPORT INFORMATION
  Report Type: 
  Country: None (occurrence: None)
  Receive Date: 20080805
  Receipt Date: 20080805
  Transmission Date: 20090109
  Serious: Yes (Disabling)
  Sender: FDA-Public Use
  Company Number: None

PATIENT
  Age: 58 Year
  Sex: Female
  Weight: 61.2356 kg

DRUGS (4)
  1. LEVAQUIN [Suspect]
     Indication: EAR INFECTION
     Dosage: TAKE ONE TAB DAILY PO
     Route: 048
     Dates: start: 20080716, end: 20080717
  2. LEVAQUIN [Suspect]
     Indication: URINARY TRACT INFECTION
     Dosage: TAKE ONE TAB DAILY PO
     Route: 048
     Dates: start: 20080716, end: 20080717
  3. B12 VITAMINS [Concomitant]
  4. APPLE CIDER VINEGAR [Concomitant]

REACTIONS (3)
  - ARTHRALGIA [None]
  - DEPRESSION [None]
  - TINNITUS [None]
